FAERS Safety Report 10513057 (Version 3)
Quarter: 2014Q4

REPORT INFORMATION
  Report Type: Spontaneous
  Country: US (occurrence: US)
  Receive Date: 20141013
  Receipt Date: 20141124
  Transmission Date: 20150528
  Serious: Yes (Other)
  Sender: FDA-Public Use
  Company Number: US-BIOGENIDEC-2014BI104359

PATIENT
  Age: 49 Year
  Sex: Female

DRUGS (1)
  1. TECFIDERA [Suspect]
     Active Substance: DIMETHYL FUMARATE
     Indication: MULTIPLE SCLEROSIS
     Dates: start: 201409, end: 20140926

REACTIONS (12)
  - Mouth swelling [Unknown]
  - Abdominal pain upper [Unknown]
  - Drug hypersensitivity [Unknown]
  - Nausea [Unknown]
  - Pyrexia [Unknown]
  - Lip swelling [Unknown]
  - Blood alkaline phosphatase increased [Recovered/Resolved]
  - Vomiting [Unknown]
  - Muscle spasms [Unknown]
  - Gastrointestinal disorder [Not Recovered/Not Resolved]
  - Vision blurred [Unknown]
  - Pruritus [Not Recovered/Not Resolved]

NARRATIVE: CASE EVENT DATE: 201409
